FAERS Safety Report 12951131 (Version 3)
Quarter: 2017Q1

REPORT INFORMATION
  Report Type: Spontaneous
  Country: CH (occurrence: CH)
  Receive Date: 20161117
  Receipt Date: 20170302
  Transmission Date: 20170428
  Serious: Yes (Hospitalization, Other)
  Sender: FDA-Public Use
  Company Number: CH-PFIZER INC-2016532545

PATIENT
  Age: 62 Year
  Sex: Male

DRUGS (19)
  1. DILZEM RETARD [Suspect]
     Active Substance: DILTIAZEM
     Indication: HEART TRANSPLANT
     Dosage: UNK, 2X/DAY (120-0-90 MG, DAILY)
     Route: 048
     Dates: start: 201603, end: 20161012
  2. CERTICAN [Interacting]
     Active Substance: EVEROLIMUS
     Indication: PROPHYLAXIS AGAINST TRANSPLANT REJECTION
     Dosage: UNK, 2X/DAY (0.25-0-0.5 MG DAILY)
     Route: 048
     Dates: start: 2011
  3. METRONIDAZOL [Concomitant]
     Active Substance: METRONIDAZOLE
     Dosage: UNK
     Dates: start: 20160919, end: 20160923
  4. CEFEPIME [Concomitant]
     Active Substance: CEFEPIME HYDROCHLORIDE
     Dosage: UNK
     Dates: start: 20161003, end: 20161007
  5. MAGNESIOCARD [Concomitant]
     Active Substance: MAGNESIUM ASPARTATE HYDROCHLORIDE
     Dosage: UNK
  6. MERONEM [Concomitant]
     Active Substance: MEROPENEM
     Dosage: UNK
     Dates: start: 20160923, end: 20160924
  7. BACTRIM [Concomitant]
     Active Substance: SULFAMETHOXAZOLE\TRIMETHOPRIM
     Dosage: 3 TIMES A WEEK
  8. ASPIRIN CARDIO [Concomitant]
     Active Substance: ASPIRIN
     Dosage: UNK
  9. PRADIF [Concomitant]
     Active Substance: TAMSULOSIN HYDROCHLORIDE
     Dosage: 400 MG, UNK
     Dates: start: 20160924
  10. ACIDUM FOLICUM STREULI [Concomitant]
     Active Substance: FOLIC ACID
     Dosage: UNK
  11. CRESTOR [Concomitant]
     Active Substance: ROSUVASTATIN CALCIUM
     Dosage: UNK
  12. TOREM [Concomitant]
     Active Substance: TORSEMIDE
     Dosage: 5 MG, DAILY
     Dates: start: 20161003
  13. DOXYCLINE [Concomitant]
     Active Substance: DOXYCYCLINE
     Dosage: UNK
     Dates: start: 20161008
  14. CALCIMAGON D3 [Concomitant]
     Active Substance: CALCIUM\CHOLECALCIFEROL
     Dosage: UNK
  15. XYZAL [Concomitant]
     Active Substance: LEVOCETIRIZINE DIHYDROCHLORIDE
     Dosage: UNK
     Dates: start: 20160922
  16. CELLCEPT [Concomitant]
     Active Substance: MYCOPHENOLATE MOFETIL\MYCOPHENOLATE MOFETIL HYDROCHLORIDE
     Dosage: 500 MG, 1X/DAY
  17. ESOMEP MUPS [Concomitant]
     Active Substance: OMEPRAZOLE
     Dosage: UNK
  18. ROCEPHIN [Concomitant]
     Active Substance: CEFTRIAXONE SODIUM
     Dosage: UNK
     Dates: start: 20160919, end: 20161003
  19. DIOVAN [Concomitant]
     Active Substance: VALSARTAN
     Dosage: 80 MG, 1X/DAY
     Dates: end: 20160919

REACTIONS (6)
  - Acute kidney injury [Recovered/Resolved]
  - Scrotal abscess [Unknown]
  - Groin abscess [Unknown]
  - Immunosuppressant drug level increased [Recovered/Resolved]
  - Pyelonephritis [Unknown]
  - Inhibitory drug interaction [Recovered/Resolved]

NARRATIVE: CASE EVENT DATE: 2016
